FAERS Safety Report 17401203 (Version 1)
Quarter: 2020Q1

REPORT INFORMATION
  Report Type: Spontaneous
  Country: US (occurrence: US)
  Receive Date: 20200211
  Receipt Date: 20200211
  Transmission Date: 20200409
  Serious: Yes (Other)
  Sender: FDA-Public Use
  Company Number: US-RECORDATI RARE DISEASES INC.-US-R13005-20-00012

PATIENT
  Age: 52 Year
  Sex: Male

DRUGS (3)
  1. TRANXENE [Suspect]
     Active Substance: CLORAZEPATE DIPOTASSIUM
     Indication: PRODUCT USED FOR UNKNOWN INDICATION
     Route: 065
     Dates: start: 201911
  2. ZOLOFT [Concomitant]
     Active Substance: SERTRALINE HYDROCHLORIDE
     Indication: PRODUCT USED FOR UNKNOWN INDICATION
     Route: 065
     Dates: start: 201910
  3. LORAZEPAM. [Concomitant]
     Active Substance: LORAZEPAM
     Indication: PRODUCT USED FOR UNKNOWN INDICATION
     Route: 065

REACTIONS (8)
  - Impaired quality of life [Unknown]
  - Insomnia [Unknown]
  - Pain [Unknown]
  - Withdrawal syndrome [Unknown]
  - Tinnitus [Unknown]
  - Headache [Unknown]
  - Hormone level abnormal [Unknown]
  - Seizure [Unknown]

NARRATIVE: CASE EVENT DATE: 201911
